FAERS Safety Report 9002868 (Version 2)
Quarter: 2013Q2

REPORT INFORMATION
  Report Type: Spontaneous
  Country: US (occurrence: US)
  Receive Date: 20130108
  Receipt Date: 20130408
  Transmission Date: 20140414
  Serious: No
  Sender: FDA-Public Use
  Company Number: US-BAYER-2013-000840

PATIENT
  Age: 58 Year
  Sex: Female

DRUGS (2)
  1. AVELOX [Suspect]
     Indication: PNEUMONIA
     Dosage: 400 MG, QD
     Route: 048
     Dates: start: 20121227, end: 20130102
  2. PROAIR HFA [Concomitant]

REACTIONS (6)
  - Nasal discomfort [Not Recovered/Not Resolved]
  - Pain in extremity [Not Recovered/Not Resolved]
  - Musculoskeletal pain [Not Recovered/Not Resolved]
  - Headache [Not Recovered/Not Resolved]
  - Gait disturbance [Not Recovered/Not Resolved]
  - Adverse event [None]
